FAERS Safety Report 12834648 (Version 3)
Quarter: 2018Q3

REPORT INFORMATION
  Report Type: Spontaneous
  Country: US (occurrence: US)
  Receive Date: 20161010
  Receipt Date: 20180803
  Transmission Date: 20181010
  Serious: Yes (Other)
  Sender: FDA-Public Use
  Company Number: US-PFIZER INC-2016472571

PATIENT
  Age: 70 Year
  Sex: Male
  Weight: 86.18 kg

DRUGS (18)
  1. PLAVIX [Concomitant]
     Active Substance: CLOPIDOGREL BISULFATE
     Indication: ANTICOAGULANT THERAPY
     Dosage: 75 MG, DAILY
     Route: 048
  2. LASIX [Concomitant]
     Active Substance: FUROSEMIDE
     Indication: DIURETIC THERAPY
     Dosage: 40 MG, 2X/DAY
     Route: 048
  3. FLOMAX [Concomitant]
     Active Substance: TAMSULOSIN HYDROCHLORIDE
     Indication: PROSTATIC DISORDER
     Dosage: 0.4 MG, DAILY
     Route: 048
  4. TRAMADOL. [Concomitant]
     Active Substance: TRAMADOL
     Indication: ANALGESIC THERAPY
     Dosage: 200 MG, 2X/DAY (2 IN THE MORNING AND 2 IN THE EVENING WITH THE LYRICA)
  5. METFORMIN [Concomitant]
     Active Substance: METFORMIN HYDROCHLORIDE
     Indication: DIABETES MELLITUS
     Dosage: 500 MG, 2X/DAY(180 PILLS)
  6. LYRICA [Suspect]
     Active Substance: PREGABALIN
     Indication: NERVE INJURY
     Dosage: 300 MG, 2X/DAY (2 IN THE MORNING AND 2 IN THE EVENING)
     Route: 048
  7. GLUCOPHAGE XR [Concomitant]
     Active Substance: METFORMIN HYDROCHLORIDE
     Indication: DIABETES MELLITUS
     Dosage: 500 MG, 2X/DAY
     Route: 048
  8. LYRICA [Suspect]
     Active Substance: PREGABALIN
     Indication: NEUROPATHY PERIPHERAL
     Dosage: 150 MG, 4X/DAY
  9. LANTUS [Concomitant]
     Active Substance: INSULIN GLARGINE
     Indication: DIABETES MELLITUS
     Dosage: 24 IU, 1X/DAY(EVERY EVENING)
     Route: 058
  10. LIPITOR [Concomitant]
     Active Substance: ATORVASTATIN CALCIUM
     Indication: BLOOD CHOLESTEROL ABNORMAL
     Dosage: 40 MG, DAILY
     Route: 048
  11. LYRICA [Suspect]
     Active Substance: PREGABALIN
     Dosage: 150 MG, UNK
  12. GLUCOTROL [Concomitant]
     Active Substance: GLIPIZIDE
     Indication: DIABETES MELLITUS
     Dosage: 15 MG, DAILY(1 TAB EVERY MORNING AND 2 TABLETS EVERY EVENING)
     Route: 048
  13. ASPIRIN. [Concomitant]
     Active Substance: ASPIRIN
     Indication: ANTICOAGULANT THERAPY
     Dosage: 81 MG, DAILY
     Route: 048
  14. ADVAIR HFA [Concomitant]
     Active Substance: FLUTICASONE PROPIONATE\SALMETEROL XINAFOATE
     Dosage: 1 DF, 2X/DAY[FLUTICASONE PROPIONATE 250 MCG/SALMETEROL XINAFOATE 50 MCG]
  15. ULTRAM [Concomitant]
     Active Substance: TRAMADOL HYDROCHLORIDE
     Indication: PAIN
     Dosage: 50 MG, 4X/DAY(AS NEEDED)
     Route: 048
  16. ULTRAM [Concomitant]
     Active Substance: TRAMADOL HYDROCHLORIDE
     Indication: DIABETIC COMPLICATION
  17. COREG [Concomitant]
     Active Substance: CARVEDILOL
     Indication: CARDIAC DISORDER
     Dosage: 12.5 MG, 2X/DAY
     Route: 048
  18. GLIPIZIDE. [Concomitant]
     Active Substance: GLIPIZIDE
     Indication: DIABETES MELLITUS
     Dosage: 15 MG, 2X/DAY (1 IN THE MORNING AND 2 AT NIGHT)

REACTIONS (6)
  - Urticaria [Unknown]
  - Urogenital disorder [Unknown]
  - Urethral stenosis [Unknown]
  - Urinary incontinence [Unknown]
  - Prescribed overdose [Unknown]
  - Insomnia [Unknown]
